FAERS Safety Report 7913785-4 (Version None)
Quarter: 2011Q4

REPORT INFORMATION
  Report Type: 
  Country: None (occurrence: None)
  Receive Date: 20111115
  Receipt Date: 20111113
  Transmission Date: 20120403
  Serious: Yes (Hospitalization)
  Sender: FDA-Public Use
  Company Number: HU-BAYER-2011-109624

PATIENT
  Age: 64 Year
  Sex: Male
  Weight: 70 kg

DRUGS (12)
  1. SPIRONOLACTONE [Concomitant]
     Indication: HEPATIC FUNCTION ABNORMAL
     Dosage: 200 MG, QD
     Route: 048
  2. CLOPIDOGREL [Concomitant]
     Dosage: UNK
     Route: 048
     Dates: end: 20110809
  3. TRAMADOL HCL [Concomitant]
     Indication: ANALGESIC THERAPY
     Route: 048
  4. BISOPROLOL [Concomitant]
     Dosage: 5 MG, QD
  5. NEXAVAR [Suspect]
     Indication: HEPATIC NEOPLASM MALIGNANT
     Dosage: 400 MG, BID
     Route: 048
     Dates: start: 20110609, end: 20110802
  6. ASPIRIN [Concomitant]
     Dosage: 100 MG, QD
     Route: 048
     Dates: start: 19980101
  7. FUROSEMIDE [Concomitant]
     Dosage: 1 DF, QD
  8. XANAX [Concomitant]
     Dosage: 0.25 MG, QD
     Route: 048
  9. ATORVASTATIN [Concomitant]
     Dosage: 40 MG, QD
     Route: 048
  10. PANTOPRAZOLE [Concomitant]
     Dosage: 80 MG, QD
  11. CERUCAL [Concomitant]
     Indication: NAUSEA
     Dosage: 3 DF, QD
     Route: 048
  12. COVEREX [Concomitant]
     Dosage: 5 MG, QD
     Route: 048

REACTIONS (12)
  - HEPATOMEGALY [None]
  - ASCITES [None]
  - HEPATIC FUNCTION ABNORMAL [None]
  - PRURITUS [None]
  - WEIGHT DECREASED [None]
  - ASTHENIA [None]
  - NAUSEA [None]
  - FLATULENCE [None]
  - JAUNDICE [None]
  - FATIGUE [None]
  - ABDOMINAL PAIN [None]
  - DIARRHOEA [None]
